FAERS Safety Report 18336801 (Version 1)
Quarter: 2020Q4

REPORT INFORMATION
  Report Type: Report from Study
  Country: EG (occurrence: EG)
  Receive Date: 20201001
  Receipt Date: 20201001
  Transmission Date: 20210113
  Serious: Yes (Other)
  Sender: FDA-Public Use
  Company Number: NVSC2020EG262794

PATIENT
  Age: 55 Year
  Sex: Male

DRUGS (6)
  1. MAREVAN [Concomitant]
     Active Substance: WARFARIN SODIUM
     Indication: PRODUCT USED FOR UNKNOWN INDICATION
     Dosage: 3 MG (ONE TABLET AND A HALF)
     Route: 065
     Dates: end: 20200924
  2. ENTRESTO [Suspect]
     Active Substance: SACUBITRIL\VALSARTAN
     Indication: CARDIAC FAILURE
     Dosage: 50 MG, BID (100 MG HALF TABLET TWICE)
     Route: 048
     Dates: start: 202002
  3. ENTRESTO [Suspect]
     Active Substance: SACUBITRIL\VALSARTAN
     Dosage: 50 MG, QD
     Route: 048
     Dates: start: 20200924
  4. LANOXIN [Concomitant]
     Active Substance: DIGOXIN
     Indication: PRODUCT USED FOR UNKNOWN INDICATION
     Dosage: 0.25 MG, QD
     Route: 065
     Dates: end: 20200924
  5. ROSEVAST [Concomitant]
     Indication: PRODUCT USED FOR UNKNOWN INDICATION
     Dosage: 20 MG, QD
     Route: 065
     Dates: end: 20200924
  6. MONOMACK [Concomitant]
     Indication: PRODUCT USED FOR UNKNOWN INDICATION
     Dosage: 2.5 MG, BID
     Route: 065
     Dates: end: 20200924

REACTIONS (10)
  - Irregular breathing [Unknown]
  - Fatigue [Unknown]
  - Product prescribing error [Unknown]
  - Ejection fraction decreased [Not Recovered/Not Resolved]
  - Asthma [Unknown]
  - Discomfort [Unknown]
  - Haematemesis [Unknown]
  - Wrong technique in product usage process [Unknown]
  - Hypokinesia [Unknown]
  - Prescribed underdose [Unknown]

NARRATIVE: CASE EVENT DATE: 202002
